FAERS Safety Report 12356958 (Version 2)
Quarter: 2016Q2

REPORT INFORMATION
  Report Type: Report from Study
  Country: US (occurrence: US)
  Receive Date: 20160511
  Receipt Date: 20160614
  Transmission Date: 20160815
  Serious: Yes (Hospitalization)
  Sender: FDA-Public Use
  Company Number: US-ACTELION-A-US2016-135373

PATIENT
  Age: 82 Year
  Sex: Female

DRUGS (11)
  1. TORSEMIDE. [Concomitant]
     Active Substance: TORSEMIDE
  2. IRON [Concomitant]
     Active Substance: IRON
  3. OPSUMIT [Suspect]
     Active Substance: MACITENTAN
     Indication: PULMONARY ARTERIAL HYPERTENSION
     Dosage: 10 MG, QD
     Route: 048
     Dates: start: 20140311
  4. DIOVAN [Concomitant]
     Active Substance: VALSARTAN
  5. METOLAZONE. [Concomitant]
     Active Substance: METOLAZONE
  6. ASA [Concomitant]
     Active Substance: ASPIRIN
  7. ADCIRCA [Concomitant]
     Active Substance: TADALAFIL
  8. ALDACTONE [Concomitant]
     Active Substance: SPIRONOLACTONE
  9. DZ [Concomitant]
  10. TRAVATAN Z [Concomitant]
     Active Substance: TRAVOPROST
  11. LIPITOR [Concomitant]
     Active Substance: ATORVASTATIN CALCIUM

REACTIONS (7)
  - Dyspnoea [Unknown]
  - Ear infection [Unknown]
  - Tinnitus [Unknown]
  - Balance disorder [Unknown]
  - Cardiac flutter [Unknown]
  - Palpitations [Unknown]
  - Headache [Unknown]
